FAERS Safety Report 23133266 (Version 3)
Quarter: 2023Q4

REPORT INFORMATION
  Report Type: Spontaneous
  Country: CH (occurrence: CH)
  Receive Date: 20231101
  Receipt Date: 20231117
  Transmission Date: 20240110
  Serious: Yes (Other)
  Sender: FDA-Public Use
  Company Number: CH-002147023-NVSC2023CH231795

PATIENT
  Sex: Female

DRUGS (1)
  1. TEGRETOL [Suspect]
     Active Substance: CARBAMAZEPINE
     Indication: Epilepsy
     Dosage: UNK
     Route: 065

REACTIONS (14)
  - Drug dependence [Unknown]
  - Epilepsy [Unknown]
  - Neuropathy peripheral [Unknown]
  - Generalised tonic-clonic seizure [Unknown]
  - Burnout syndrome [Unknown]
  - Mental disorder [Unknown]
  - Impaired work ability [Unknown]
  - Drug ineffective [Unknown]
  - Ill-defined disorder [Unknown]
  - Neuralgia [Unknown]
  - Pelvic floor muscle weakness [Unknown]
  - Pain [Unknown]
  - Muscle fatigue [Unknown]
  - Product dose omission issue [Unknown]
